FAERS Safety Report 13526892 (Version 2)
Quarter: 2017Q2

REPORT INFORMATION
  Report Type: Spontaneous
  Country: JP (occurrence: JP)
  Receive Date: 20170509
  Receipt Date: 20170613
  Transmission Date: 20170830
  Serious: Yes (Other)
  Sender: FDA-Public Use
  Company Number: JP-BAYER-2017-081058

PATIENT
  Age: 77 Year
  Sex: Male
  Weight: 63.3 kg

DRUGS (9)
  1. KOLANTYL [Concomitant]
     Active Substance: DICYCLOMINE HYDROCHLORIDE
     Dosage: DAILY DOSE 3 G
     Route: 048
     Dates: start: 19991224
  2. URSODEOXYCHOLIC ACID [Concomitant]
     Active Substance: URSODIOL
     Dosage: DAILY DOSE 600 MG
     Route: 048
     Dates: start: 19991229
  3. MAGNESIUM OXIDE. [Concomitant]
     Active Substance: MAGNESIUM OXIDE
     Dosage: DAILY DOSE 330 MG
     Route: 048
     Dates: start: 19991020
  4. DUTASTERIDE. [Concomitant]
     Active Substance: DUTASTERIDE
     Dosage: DAILY DOSE .5 MG
     Route: 048
     Dates: start: 20140912
  5. UBRETID [Concomitant]
     Active Substance: DISTIGMINE BROMIDE
     Dosage: DAILY DOSE 5 MG
     Route: 048
     Dates: start: 20140912
  6. NEXAVAR [Suspect]
     Active Substance: SORAFENIB
     Indication: HEPATOCELLULAR CARCINOMA
     Dosage: 400 MG, QD
     Route: 048
     Dates: start: 20160708
  7. SILODOSIN [Concomitant]
     Active Substance: SILODOSIN
     Dosage: DAILY DOSE 8 MG
     Route: 048
     Dates: start: 20140912
  8. NIFEDIPINE LA [Concomitant]
     Dosage: DAILY DOSE 20 MG
     Route: 048
     Dates: start: 19991020
  9. KM [Concomitant]
     Dosage: DAILY DOSE 3.9 G
     Route: 048
     Dates: start: 19991224

REACTIONS (1)
  - Skin infection [Recovering/Resolving]

NARRATIVE: CASE EVENT DATE: 20170411
